FAERS Safety Report 9069045 (Version 7)
Quarter: 2014Q4

REPORT INFORMATION
  Report Type: Spontaneous
  Country: US (occurrence: US)
  Receive Date: 20130215
  Receipt Date: 20141209
  Transmission Date: 20150529
  Serious: Yes (Other)
  Sender: FDA-Public Use
  Company Number: US-PFIZER INC-2013054813

PATIENT
  Age: 68 Year
  Sex: Male

DRUGS (6)
  1. BOSULIF [Suspect]
     Active Substance: BOSUTINIB MONOHYDRATE
     Dosage: 300 MG, 1X/DAY
     Dates: start: 20131228
  2. CIPROFLOXACIN. [Concomitant]
     Active Substance: CIPROFLOXACIN
     Dosage: UNK (FOR 3 WEEKS)
  3. BOSULIF [Suspect]
     Active Substance: BOSUTINIB MONOHYDRATE
     Dosage: 100 MG, 3 TABLETS DAILY
     Route: 048
     Dates: start: 20130118
  4. BOSULIF [Suspect]
     Active Substance: BOSUTINIB MONOHYDRATE
     Indication: CHRONIC MYELOID LEUKAEMIA
     Dosage: 100 MG, 3 TABLETS DAILY
     Route: 048
     Dates: start: 20130118
  5. DILTIAZEM HYDROCHLORIDE. [Concomitant]
     Active Substance: DILTIAZEM HYDROCHLORIDE
     Dosage: UNK
  6. PRILOSEC [Concomitant]
     Active Substance: OMEPRAZOLE MAGNESIUM
     Indication: GASTROOESOPHAGEAL REFLUX DISEASE
     Dosage: UNK (FOR SEVERAL YEARS)

REACTIONS (17)
  - Bone pain [Unknown]
  - Back pain [Unknown]
  - Seizure [Recovered/Resolved]
  - Blood glucose abnormal [Unknown]
  - Productive cough [Unknown]
  - Neck pain [Unknown]
  - Prostatomegaly [Unknown]
  - Prostatic specific antigen increased [Unknown]
  - Cardiac arrest [Recovered/Resolved with Sequelae]
  - Decreased appetite [Unknown]
  - Skin disorder [Unknown]
  - Platelet count decreased [Not Recovered/Not Resolved]
  - Pyrexia [Unknown]
  - Nausea [Unknown]
  - Vomiting [Unknown]
  - Fatigue [Unknown]
  - Abdominal distension [Unknown]

NARRATIVE: CASE EVENT DATE: 2013
